FAERS Safety Report 7921094-2 (Version None)
Quarter: 2011Q4

REPORT INFORMATION
  Report Type: 
  Country: None (occurrence: None)
  Receive Date: 20111117
  Receipt Date: 20111115
  Transmission Date: 20120403
  Serious: Yes (Hospitalization, Disabling, Other)
  Sender: FDA-Public Use
  Company Number: US-MERCK-1107USA03695

PATIENT
  Age: 58 Year
  Sex: Female

DRUGS (2)
  1. LEVOTHYROXINE SODIUM [Concomitant]
     Route: 065
     Dates: start: 19900101
  2. FOSAMAX [Suspect]
     Indication: OSTEOPOROSIS
     Route: 048
     Dates: start: 20020101, end: 20070101

REACTIONS (16)
  - TOOTH LOSS [None]
  - JAW FRACTURE [None]
  - ORAL DISORDER [None]
  - GINGIVAL INFECTION [None]
  - SYNCOPE [None]
  - ABSCESS [None]
  - FISTULA DISCHARGE [None]
  - GASTRIC ULCER [None]
  - JAW DISORDER [None]
  - DENTAL CARIES [None]
  - GINGIVAL DISORDER [None]
  - OSTEOMYELITIS [None]
  - BLOOD DISORDER [None]
  - TOOTH DISORDER [None]
  - OSTEONECROSIS OF JAW [None]
  - IMPAIRED HEALING [None]
